FAERS Safety Report 21891553 (Version 2)
Quarter: 2023Q1

REPORT INFORMATION
  Report Type: Spontaneous
  Country: FI (occurrence: FI)
  Receive Date: 20230120
  Receipt Date: 20230130
  Transmission Date: 20230418
  Serious: Yes (Life-Threatening, Hospitalization, Other)
  Sender: FDA-Public Use
  Company Number: FI-FERRINGPH-2023FE00153

PATIENT

DRUGS (8)
  1. PICOPREP [Suspect]
     Active Substance: ANHYDROUS CITRIC ACID\MAGNESIUM OXIDE\SODIUM PICOSULFATE
     Indication: Bowel preparation
     Dosage: 2 DOSAGE FORM
     Route: 065
     Dates: start: 20221212, end: 20221212
  2. ESCITALOPRAM [Concomitant]
     Active Substance: ESCITALOPRAM OXALATE
     Dosage: 10 MG
  3. ALFUZOSIN [Concomitant]
     Active Substance: ALFUZOSIN
     Dosage: 10 MG
  4. ATORVASTATIN [Concomitant]
     Active Substance: ATORVASTATIN
     Dosage: 10 MG
  5. KLOPIDOGREL [CLOPIDOGREL] [Concomitant]
     Dosage: 75 MG
  6. ACETAMINOPHEN\CODEINE PHOSPHATE [Concomitant]
     Active Substance: ACETAMINOPHEN\CODEINE PHOSPHATE
     Dosage: WHEN NEEDED
  7. HERBALS\PLANTAGO OVATA LEAF [Concomitant]
     Active Substance: HERBALS\PLANTAGO OVATA LEAF
     Indication: Constipation
     Dosage: WHEN NEEDED
  8. VITAMINS NOS [Concomitant]
     Active Substance: VITAMINS
     Indication: Supplementation therapy
     Dosage: UNK

REACTIONS (8)
  - Circulatory collapse [Recovering/Resolving]
  - Spinal fracture [Recovering/Resolving]
  - Rhabdomyolysis [Recovering/Resolving]
  - Muscle spasms [Recovering/Resolving]
  - Water intoxication [Recovering/Resolving]
  - Seizure [Recovering/Resolving]
  - Hyponatraemia [Recovering/Resolving]
  - Product communication issue [Recovered/Resolved]

NARRATIVE: CASE EVENT DATE: 20221212
